FAERS Safety Report 10261371 (Version 1)
Quarter: 2014Q2

REPORT INFORMATION
  Report Type: Spontaneous
  Country: US (occurrence: US)
  Receive Date: 20140626
  Receipt Date: 20140626
  Transmission Date: 20141212
  Serious: No
  Sender: FDA-Public Use
  Company Number: US-MYLANLABS-2014S1004044

PATIENT
  Age: 61 Year
  Sex: Female

DRUGS (4)
  1. METHOTREXATE TABLETS, USP [Suspect]
     Indication: BEHCET^S SYNDROME
     Dates: start: 20140213
  2. METHOTREXATE TABLETS, USP [Suspect]
     Indication: OFF LABEL USE
     Dates: start: 20140213
  3. FOLIC ACID [Concomitant]
  4. PREDNISONE [Concomitant]

REACTIONS (4)
  - Diarrhoea [Not Recovered/Not Resolved]
  - Abdominal distension [Not Recovered/Not Resolved]
  - Flatulence [Not Recovered/Not Resolved]
  - Nausea [Not Recovered/Not Resolved]
